FAERS Safety Report 21718045 (Version 1)
Quarter: 2022Q4

REPORT INFORMATION
  Report Type: Spontaneous
  Country: None (occurrence: CA)
  Receive Date: 20221212
  Receipt Date: 20221212
  Transmission Date: 20230113
  Serious: Yes (Other)
  Sender: FDA-Public Use
  Company Number: CA-B.Braun Medical Inc.-2135792

PATIENT
  Sex: Female

DRUGS (6)
  1. DEXTROSE [Suspect]
     Active Substance: DEXTROSE
  2. AMPICILLIN SODIUM [Suspect]
     Active Substance: AMPICILLIN SODIUM
  3. ATOSIBAN [Suspect]
     Active Substance: ATOSIBAN
  4. AZITHROMYCIN [Suspect]
     Active Substance: AZITHROMYCIN
     Route: 048
  5. BETAMETHASONE [Suspect]
     Active Substance: BETAMETHASONE
     Route: 030
  6. GENTAMICIN [Suspect]
     Active Substance: GENTAMICIN
     Route: 042

REACTIONS (4)
  - Delivery [None]
  - Maternal exposure during pregnancy [None]
  - Normal labour [None]
  - Premature delivery [None]
